FAERS Safety Report 10350026 (Version 1)
Quarter: 2014Q3

REPORT INFORMATION
  Report Type: Spontaneous
  Country: US (occurrence: None)
  Receive Date: 20140728
  Receipt Date: 20140728
  Transmission Date: 20150326
  Serious: Yes (Death)
  Sender: FDA-Public Use
  Company Number: US-MDCO-14-00164

PATIENT
  Age: 66 Year
  Sex: Male

DRUGS (1)
  1. ANGIOMAX [Suspect]
     Active Substance: BIVALIRUDIN
     Indication: PERCUTANEOUS CORONARY INTERVENTION

REACTIONS (7)
  - Device breakage [None]
  - Haemodynamic instability [None]
  - Cardiac arrest [None]
  - Ventricular fibrillation [None]
  - Coronary artery dissection [None]
  - Coronary artery thrombosis [None]
  - Procedural complication [None]
